FAERS Safety Report 6160150-9 (Version None)
Quarter: 2009Q2

REPORT INFORMATION
  Report Type: 
  Country: None (occurrence: None)
  Receive Date: 20090420
  Receipt Date: 20090410
  Transmission Date: 20091009
  Serious: Yes (Hospitalization)
  Sender: FDA-Public Use
  Company Number: A0757511A

PATIENT
  Age: 53 Year
  Sex: Male
  Weight: 79.5 kg

DRUGS (13)
  1. AVANDIA [Suspect]
     Dosage: 4MG TWICE PER DAY
     Route: 048
     Dates: start: 20000101, end: 20070501
  2. GLUCOPHAGE [Concomitant]
  3. METFORMIN HCL [Concomitant]
  4. GLYBURIDE [Concomitant]
  5. ACIPHEX [Concomitant]
  6. PRILOSEC [Concomitant]
  7. PREVACID [Concomitant]
  8. PROTONIX [Concomitant]
  9. CLARITIN [Concomitant]
  10. FLONASE [Concomitant]
  11. VIAGRA [Concomitant]
  12. LIPITOR [Concomitant]
  13. TOPROL-XL [Concomitant]

REACTIONS (2)
  - MYOCARDIAL INFARCTION [None]
  - MYOCARDIAL ISCHAEMIA [None]
